FAERS Safety Report 8788863 (Version 4)
Quarter: 2013Q1

REPORT INFORMATION
  Report Type: Spontaneous
  Country: US (occurrence: US)
  Receive Date: 20120917
  Receipt Date: 20130116
  Transmission Date: 20140127
  Serious: No
  Sender: FDA-Public Use
  Company Number: US-PFIZER INC-2012223100

PATIENT
  Age: 61 Year
  Sex: Male
  Weight: 69.39 kg

DRUGS (5)
  1. INLYTA [Suspect]
     Indication: RENAL CANCER
     Dosage: 10 MG, 2X/DAY
     Route: 048
     Dates: start: 201209
  2. INLYTA [Suspect]
     Indication: METASTASES TO LUNG
     Dosage: 5 MG, 2X/DAY
     Dates: start: 201210
  3. INLYTA [Suspect]
     Indication: RENAL CANCER
  4. AMLODIPINE [Concomitant]
     Indication: HYPERTENSION
     Dosage: 10 MG, DAILY
  5. LABETALOL [Concomitant]
     Indication: HYPERTENSION
     Dosage: 400 MG (TWO TABLETS OF 200MG), 2X/DAY
     Route: 048

REACTIONS (4)
  - Incorrect dose administered [Unknown]
  - Presyncope [Unknown]
  - Dizziness [Unknown]
  - Diarrhoea [Unknown]
